FAERS Safety Report 10077287 (Version 2)
Quarter: 2014Q2

REPORT INFORMATION
  Report Type: Spontaneous
  Country: FR (occurrence: None)
  Receive Date: 20140411
  Receipt Date: 20140512
  Transmission Date: 20141212
  Serious: Yes (Other)
  Sender: FDA-Public Use
  Company Number: AXC-2014-000124

PATIENT
  Age: 57 Year
  Sex: Male

DRUGS (2)
  1. PYLERA (BISMUTH SUBCITRATE POTASSIUM, METRONIDAZOLE, TETRACYCLINE HYDROCHLORIDE) CAPSULE [Suspect]
     Indication: HELICOBACTER INFECTION
     Route: 048
     Dates: start: 201312, end: 201312
  2. CRESTOR (ROSUVASTATIN CALCIUM) [Concomitant]

REACTIONS (3)
  - Dermoid cyst [None]
  - Nasal discomfort [None]
  - Rhinalgia [None]
